FAERS Safety Report 4625644-3 (Version None)
Quarter: 2005Q1

REPORT INFORMATION
  Report Type: 
  Country: None (occurrence: None)
  Receive Date: 20050330
  Receipt Date: 20050314
  Transmission Date: 20050727
  Serious: Yes (Hospitalization)
  Sender: FDA-Public Use
  Company Number: GBS050316912

PATIENT
  Age: 42 Year
  Sex: Female

DRUGS (11)
  1. CEFACLOR [Suspect]
     Indication: PERIODONTITIS
  2. METFORMIN HCL [Concomitant]
  3. ASPIRIN [Concomitant]
  4. TRAMADOL HCL [Concomitant]
  5. FOLIC ACID [Concomitant]
  6. DEXAMETHASONE [Concomitant]
  7. NEURONTIN (GABAPENTIN PFIZER) [Concomitant]
  8. LOSEC (OMEPRAZOLE SODIUM) [Concomitant]
  9. OXYTETRACYCLINE [Concomitant]
  10. HUMALOG [Concomitant]
  11. ISTIN (AMLODIPINE BESILATE) [Concomitant]

REACTIONS (5)
  - BRONCHOSPASM [None]
  - DYSPNOEA [None]
  - FACE OEDEMA [None]
  - RESPIRATORY DEPRESSION [None]
  - STUPOR [None]
